FAERS Safety Report 16787946 (Version 2)
Quarter: 2019Q3

REPORT INFORMATION
  Report Type: Report from Study
  Country: US (occurrence: US)
  Receive Date: 20190909
  Receipt Date: 20190916
  Transmission Date: 20191005
  Serious: Yes (Death, Hospitalization, Other)
  Sender: FDA-Public Use
  Company Number: US-ACTELION-A-US2019-195224

PATIENT
  Age: 67 Year
  Sex: Female
  Weight: 111.11 kg

DRUGS (16)
  1. ADEMPAS [Suspect]
     Active Substance: RIOCIGUAT
     Indication: PRODUCT USED FOR UNKNOWN INDICATION
     Dosage: UNK
     Route: 065
     Dates: start: 20190523
  2. ALBUTEROL. [Concomitant]
     Active Substance: ALBUTEROL
     Dosage: UNK
     Dates: start: 201907
  3. ADEMPAS [Suspect]
     Active Substance: RIOCIGUAT
     Dosage: 2 MG, TID
     Route: 065
  4. UPTRAVI [Suspect]
     Active Substance: SELEXIPAG
     Indication: PORTOPULMONARY HYPERTENSION
     Dosage: 400 MCG, BID
     Route: 048
     Dates: start: 20190810, end: 20190822
  5. UPTRAVI [Suspect]
     Active Substance: SELEXIPAG
     Dosage: 200 MCG, BID
     Route: 048
     Dates: start: 20190730, end: 20190809
  6. IMURAN [Suspect]
     Active Substance: AZATHIOPRINE
     Indication: PRODUCT USED FOR UNKNOWN INDICATION
     Dosage: UNK
     Route: 065
     Dates: start: 201906
  7. FUROSEMIDE. [Concomitant]
     Active Substance: FUROSEMIDE
     Dosage: 80 MG, TID
  8. OMEPRAZOLE. [Concomitant]
     Active Substance: OMEPRAZOLE
  9. SILDENAFIL. [Concomitant]
     Active Substance: SILDENAFIL
  10. ADEMPAS [Suspect]
     Active Substance: RIOCIGUAT
     Dosage: 0.5 MG, TID
     Route: 065
  11. AMARYL [Concomitant]
     Active Substance: GLIMEPIRIDE
     Dosage: UNK
     Dates: start: 201905
  12. FUROSEMIDE. [Concomitant]
     Active Substance: FUROSEMIDE
     Dosage: UNK
  13. OPSUMIT [Suspect]
     Active Substance: MACITENTAN
     Indication: PORTOPULMONARY HYPERTENSION
     Dosage: 10 MG, QD
     Route: 048
     Dates: start: 20190523, end: 20190824
  14. SYNTHROID [Concomitant]
     Active Substance: LEVOTHYROXINE SODIUM
     Dosage: UNK
     Dates: start: 201907
  15. ALDACTONE [Concomitant]
     Active Substance: SPIRONOLACTONE
     Dosage: UNK
     Dates: start: 201905
  16. TYLENOL [Concomitant]
     Active Substance: ACETAMINOPHEN

REACTIONS (33)
  - Hepatic cirrhosis [Unknown]
  - Drug-induced liver injury [Unknown]
  - Biopsy liver abnormal [Unknown]
  - Hepatic encephalopathy [Unknown]
  - Hyponatraemia [Unknown]
  - Metabolic encephalopathy [Unknown]
  - Sepsis [Unknown]
  - Urinary tract infection [Unknown]
  - Unevaluable event [Unknown]
  - Hepatic failure [Unknown]
  - Hepatorenal syndrome [Unknown]
  - Paracentesis [Unknown]
  - Acute respiratory failure [Unknown]
  - Thrombocytopenia [Unknown]
  - Cor pulmonale [Unknown]
  - Hepatic congestion [Unknown]
  - Ascites [Unknown]
  - Liver function test abnormal [Unknown]
  - Coagulopathy [Unknown]
  - Neutropenia [Unknown]
  - Right ventricular failure [Fatal]
  - Hypotension [Unknown]
  - Anaemia [Unknown]
  - Mental status changes [Unknown]
  - Pancytopenia [Unknown]
  - Fluid overload [Unknown]
  - Hypophagia [Unknown]
  - Back pain [Unknown]
  - Septic shock [Unknown]
  - Cardiogenic shock [Unknown]
  - Waist circumference increased [Unknown]
  - Supraventricular tachycardia [Unknown]
  - Hypophosphataemia [Unknown]

NARRATIVE: CASE EVENT DATE: 20190725
